FAERS Safety Report 8393132-7 (Version None)
Quarter: 2012Q2

REPORT INFORMATION
  Report Type: 
  Country: None (occurrence: None)
  Receive Date: 20120529
  Receipt Date: 20120501
  Transmission Date: 20120825
  Serious: No
  Sender: FDA-Public Use
  Company Number: US-ABBOTT-12P-163-0931832-00

PATIENT
  Sex: Male

DRUGS (3)
  1. UNKNOWN BLOOD PRESSURE MEDICATION [Concomitant]
     Indication: BLOOD PRESSURE
  2. ANDROGEL [Suspect]
     Indication: BLOOD TESTOSTERONE DECREASED
     Route: 061
  3. ANDROGEL [Suspect]
     Indication: BLOOD TESTOSTERONE DECREASED
     Route: 061

REACTIONS (4)
  - OEDEMA PERIPHERAL [None]
  - BLOOD TESTOSTERONE INCREASED [None]
  - FEELING ABNORMAL [None]
  - BLOOD PRESSURE INCREASED [None]
